FAERS Safety Report 10013584 (Version 2)
Quarter: 2014Q2

REPORT INFORMATION
  Report Type: Report from Study
  Country: CA (occurrence: CA)
  Receive Date: 20140315
  Receipt Date: 20140422
  Transmission Date: 20141212
  Serious: Yes (Death, Hospitalization)
  Sender: FDA-Public Use
  Company Number: CA-ROCHE-1365646

PATIENT
  Age: 85 Year
  Sex: Female

DRUGS (12)
  1. RANIBIZUMAB [Suspect]
     Indication: AGE-RELATED MACULAR DEGENERATION
     Dosage: LAST DOSE OF PRIOR TO THE EVENT WAS ON 17/DEC/2013
     Route: 065
     Dates: start: 20111024
  2. LIPITOR [Concomitant]
     Route: 065
     Dates: start: 2000
  3. LIPITOR [Concomitant]
     Route: 065
     Dates: start: 20131230
  4. ASA (ACETYLSALICYLIC ACID) [Concomitant]
     Route: 065
     Dates: start: 2000
  5. ASA (ACETYLSALICYLIC ACID) [Concomitant]
     Route: 065
     Dates: start: 20131230
  6. ACTONEL [Concomitant]
     Route: 065
     Dates: start: 2002
  7. GLUCOPHAGE [Concomitant]
     Route: 065
     Dates: start: 2000
  8. GLUCOPHAGE [Concomitant]
     Route: 065
     Dates: start: 20131230
  9. DIAMICRON [Concomitant]
     Route: 065
     Dates: start: 2000
  10. DIAMICRON [Concomitant]
     Route: 065
     Dates: start: 20131230
  11. ALTACE [Concomitant]
     Route: 065
     Dates: start: 2000
  12. ALTACE [Concomitant]
     Route: 065
     Dates: start: 20131230

REACTIONS (2)
  - Myocardial infarction [Fatal]
  - Cerebrovascular accident [Fatal]
